FAERS Safety Report 5806899-6 (Version None)
Quarter: 2008Q3

REPORT INFORMATION
  Report Type: 
  Country: None (occurrence: None)
  Receive Date: 20080711
  Receipt Date: 20080630
  Transmission Date: 20090109
  Serious: Yes (Other)
  Sender: FDA-Public Use
  Company Number: US-ROCHE-564081

PATIENT
  Age: 82 Year
  Sex: Female

DRUGS (6)
  1. BONIVA [Suspect]
     Indication: OSTEOPENIA
     Route: 065
     Dates: start: 20080101, end: 20080301
  2. XIFAXAN [Suspect]
     Indication: DIARRHOEA
     Route: 065
     Dates: start: 20080502
  3. PREMARIN [Concomitant]
  4. LEVOXYL [Concomitant]
  5. LOVASTATIN [Concomitant]
  6. AMLODIPINE [Concomitant]
     Dosage: DRUG REPORTED AS: M-LODOPINE

REACTIONS (8)
  - DIARRHOEA [None]
  - DYSPHAGIA [None]
  - HYPERSENSITIVITY [None]
  - HYPOTHYROIDISM [None]
  - LIP SWELLING [None]
  - MYALGIA [None]
  - SWELLING FACE [None]
  - URTICARIA [None]
